FAERS Safety Report 9256357 (Version 1)
Quarter: 2013Q2

REPORT INFORMATION
  Report Type: Spontaneous
  Country: US (occurrence: US)
  Receive Date: 20130425
  Receipt Date: 20130425
  Transmission Date: 20140414
  Serious: No
  Sender: FDA-Public Use
  Company Number: US-ASTRAZENECA-2013SE23813

PATIENT
  Age: 72 Year
  Sex: Male
  Weight: 114.3 kg

DRUGS (4)
  1. NEXIUM [Suspect]
     Indication: GASTROOESOPHAGEAL REFLUX DISEASE
     Route: 048
     Dates: start: 2003, end: 2011
  2. HCTZ [Concomitant]
  3. COZAR [Concomitant]
  4. LUBAGAN [Concomitant]

REACTIONS (5)
  - Dyspepsia [Unknown]
  - Dyspepsia [Unknown]
  - Gastrointestinal pain [Unknown]
  - Abdominal discomfort [Unknown]
  - Drug ineffective [Unknown]
